FAERS Safety Report 8031861-5 (Version None)
Quarter: 2012Q1

REPORT INFORMATION
  Report Type: 
  Country: None (occurrence: None)
  Receive Date: 20120109
  Receipt Date: 20111230
  Transmission Date: 20120608
  Serious: Yes (Other)
  Sender: FDA-Public Use
  Company Number: US-ELI_LILLY_AND_COMPANY-US201201000935

PATIENT
  Sex: Female

DRUGS (7)
  1. MEDROL [Concomitant]
  2. CYMBALTA [Suspect]
     Dosage: 30 MG, QD
     Dates: start: 20110501
  3. LASIX                                   /USA/ [Concomitant]
  4. XANAX                                   /USA/ [Concomitant]
     Dosage: 0.5 MG, UNK
  5. CYMBALTA [Suspect]
     Dosage: 60 MG, QD
  6. LEVOTHROID [Concomitant]
  7. ADDERALL 5 [Concomitant]

REACTIONS (4)
  - HYPERHIDROSIS [None]
  - RASH MACULAR [None]
  - SYSTEMIC LUPUS ERYTHEMATOSUS RASH [None]
  - BLISTER [None]
